FAERS Safety Report 17826207 (Version 1)
Quarter: 2020Q2

REPORT INFORMATION
  Report Type: Report from Study
  Country: TR (occurrence: TR)
  Receive Date: 20200526
  Receipt Date: 20200526
  Transmission Date: 20200714
  Serious: Yes (Other)
  Sender: FDA-Public Use
  Company Number: TR-JNJFOC-20200517694

PATIENT

DRUGS (2)
  1. STELARA [Suspect]
     Active Substance: USTEKINUMAB
     Indication: PSORIASIS
     Route: 058
  2. STELARA [Suspect]
     Active Substance: USTEKINUMAB
     Route: 058

REACTIONS (6)
  - Erectile dysfunction [Unknown]
  - Therapeutic response decreased [Unknown]
  - Neuropathy peripheral [Unknown]
  - Lung neoplasm malignant [Unknown]
  - Pruritus [Unknown]
  - Dyspnoea [Unknown]
